FAERS Safety Report 15459440 (Version 3)
Quarter: 2018Q4

REPORT INFORMATION
  Report Type: Spontaneous
  Country: JP (occurrence: JP)
  Receive Date: 20181003
  Receipt Date: 20181018
  Transmission Date: 20190204
  Serious: Yes (Other)
  Sender: FDA-Public Use
  Company Number: JP-PFIZER INC-2018396397

PATIENT
  Age: 58 Year
  Sex: Female

DRUGS (4)
  1. OXALIPLATIN. [Suspect]
     Active Substance: OXALIPLATIN
     Indication: METASTASES TO LYMPH NODES
     Dosage: 100 MG/M2, CYCLIC (100 MG/M2 ON DAY 1, REPEATED EVERY 4 WEEKS)
     Dates: start: 2011, end: 201205
  2. OXALIPLATIN. [Suspect]
     Active Substance: OXALIPLATIN
     Indication: COLON CANCER RECURRENT
  3. CAPECITABINE. [Concomitant]
     Active Substance: CAPECITABINE
     Indication: COLON CANCER RECURRENT
     Dosage: 1200 MG, CYCLIC (1200 MG, TWICE DAILY FOR 2 WEEKS, REPEATED EVERY 4 WEEKS)
     Dates: start: 2011
  4. CAPECITABINE. [Concomitant]
     Active Substance: CAPECITABINE
     Indication: METASTASES TO LYMPH NODES

REACTIONS (2)
  - Neuropathy peripheral [Recovering/Resolving]
  - Neurotoxicity [Recovering/Resolving]
